FAERS Safety Report 16242042 (Version 5)
Quarter: 2019Q3

REPORT INFORMATION
  Report Type: Spontaneous
  Country: JP (occurrence: JP)
  Receive Date: 20190426
  Receipt Date: 20190822
  Transmission Date: 20191004
  Serious: Yes (Hospitalization, Other)
  Sender: FDA-Public Use
  Company Number: JP-ASTELLAS-2015JP022896AA

PATIENT
  Age: 24 Year
  Sex: Female

DRUGS (25)
  1. GRACEPTOR [Suspect]
     Active Substance: TACROLIMUS
     Dosage: 3 MG/DAY, UNKNOWN FREQ.
     Route: 048
  2. GRACEPTOR [Suspect]
     Active Substance: TACROLIMUS
     Dosage: 4.5 MG/DAY, UNKNOWN FREQ.
     Route: 048
  3. GRACEPTOR [Suspect]
     Active Substance: TACROLIMUS
     Dosage: 0.5 MG/DAY, UNKNOWN FREQ.
     Route: 048
  4. GANCICLOVIR. [Concomitant]
     Active Substance: GANCICLOVIR
     Indication: PNEUMONIA CYTOMEGALOVIRAL
     Dosage: 40 MG/DAY, UNKNOWN FREQ.
     Route: 065
  5. SULFAMETHOXAZOLE AND TRIMETHOPRIM [Concomitant]
     Active Substance: SULFAMETHOXAZOLE\TRIMETHOPRIM
     Indication: PNEUMONIA CYTOMEGALOVIRAL
     Dosage: S 800MG,T 160MG, ONCE DAILY
     Route: 065
  6. GRACEPTOR [Suspect]
     Active Substance: TACROLIMUS
     Dosage: 5 MG/DAY, UNKNOWN FREQ.
     Route: 048
  7. GRACEPTOR [Suspect]
     Active Substance: TACROLIMUS
     Dosage: 4 MG/DAY, UNKNOWN FREQ.
     Route: 048
  8. MYCOPHENOLATE MOFETIL. [Concomitant]
     Active Substance: MYCOPHENOLATE MOFETIL
     Dosage: 1750 MG/DAY, UNKNOWN FREQ.
     Route: 048
  9. MYCOPHENOLATE MOFETIL. [Concomitant]
     Active Substance: MYCOPHENOLATE MOFETIL
     Indication: IMMUNOSUPPRESSANT DRUG THERAPY
     Dosage: 2000 MG/DAY, UNKNOWN FREQ.
     Route: 048
  10. GRACEPTOR [Suspect]
     Active Substance: TACROLIMUS
     Indication: IMMUNOSUPPRESSION
     Dosage: UNK UNK, UNKNOWN FREQ.
     Route: 048
  11. PROGRAF [Suspect]
     Active Substance: TACROLIMUS\TACROLIMUS ANHYDROUS
     Indication: IMMUNOSUPPRESSION
     Dosage: 1 MG/DAY, UNKNOWN FREQ.
     Route: 042
  12. FUNGUARD [Suspect]
     Active Substance: MICAFUNGIN SODIUM
     Indication: PNEUMONIA CYTOMEGALOVIRAL
     Dosage: 150 MG/DAY, UNKNOWN FREQ.
     Route: 065
  13. METHYLPREDNISOLONE. [Concomitant]
     Active Substance: METHYLPREDNISOLONE
     Dosage: 4 MG/DAY, UNKNOWN FREQ.
     Route: 048
  14. MYCOPHENOLATE MOFETIL. [Concomitant]
     Active Substance: MYCOPHENOLATE MOFETIL
     Dosage: 250 MG/DAY, UNKNOWN FREQ.
     Route: 048
  15. EVEROLIMUS. [Concomitant]
     Active Substance: EVEROLIMUS
     Indication: IMMUNOSUPPRESSANT DRUG THERAPY
     Dosage: 1 MG/DAY, UNKNOWN FREQ.
     Route: 048
  16. EVEROLIMUS. [Concomitant]
     Active Substance: EVEROLIMUS
     Dosage: 0.5 MG/DAY, UNKNOWN FREQ.
     Route: 048
  17. MYCOPHENOLATE MOFETIL. [Concomitant]
     Active Substance: MYCOPHENOLATE MOFETIL
     Dosage: 1500 MG/DAY, UNKNOWN FREQ.
     Route: 048
  18. MYCOPHENOLATE MOFETIL. [Concomitant]
     Active Substance: MYCOPHENOLATE MOFETIL
     Dosage: 750 MG/DAY, UNKNOWN FREQ.
     Route: 048
  19. MYCOPHENOLATE MOFETIL. [Concomitant]
     Active Substance: MYCOPHENOLATE MOFETIL
     Dosage: 500 MG/DAY, UNKNOWN FREQ.
     Route: 048
  20. MEROPENEM. [Concomitant]
     Active Substance: MEROPENEM
     Indication: PNEUMONIA CYTOMEGALOVIRAL
     Dosage: 1 MG/DAY, UNKNOWN FREQ.
     Route: 065
  21. METHYLPREDNISOLONE. [Concomitant]
     Active Substance: METHYLPREDNISOLONE
     Indication: IMMUNOSUPPRESSION
     Dosage: UNK UNK, UNKNOWN FREQ.
     Route: 048
  22. METHYLPREDNISOLONE. [Concomitant]
     Active Substance: METHYLPREDNISOLONE
     Indication: PNEUMONIA CYTOMEGALOVIRAL
     Dosage: 40 MG/DAY, UNKNOWN FREQ.
     Route: 048
  23. METHYLPREDNISOLONE. [Concomitant]
     Active Substance: METHYLPREDNISOLONE
     Dosage: 250 MG/DAY, UNKNOWN FREQ.
     Route: 048
  24. MYCOPHENOLATE MOFETIL. [Concomitant]
     Active Substance: MYCOPHENOLATE MOFETIL
     Dosage: 1000 MG/DAY, UNKNOWN FREQ.
     Route: 048
  25. EVEROLIMUS. [Concomitant]
     Active Substance: EVEROLIMUS
     Dosage: 1 MG/DAY, UNKNOWN FREQ.
     Route: 048

REACTIONS (7)
  - Hypoxia [Unknown]
  - Acute kidney injury [Unknown]
  - Pneumonia cytomegaloviral [Recovering/Resolving]
  - Renal tubular necrosis [Unknown]
  - Anorexia nervosa [Recovered/Resolved]
  - Ischaemia [Unknown]
  - Septic shock [Unknown]
